FAERS Safety Report 5427182-7 (Version None)
Quarter: 2007Q3

REPORT INFORMATION
  Report Type: 
  Country: None (occurrence: None)
  Receive Date: 20070828
  Receipt Date: 20070824
  Transmission Date: 20080115
  Serious: Yes (Hospitalization)
  Sender: FDA-Public Use
  Company Number: BEWYE060117OCT05

PATIENT
  Age: 65 Year
  Sex: Female
  Weight: 74.8 kg

DRUGS (42)
  1. SIROLIMUS [Suspect]
     Indication: PROPHYLAXIS AGAINST TRANSPLANT REJECTION
     Route: 048
     Dates: start: 20050201, end: 20050224
  2. SIROLIMUS [Suspect]
     Route: 048
     Dates: start: 20050225, end: 20050307
  3. SIROLIMUS [Suspect]
     Route: 048
     Dates: start: 20050308, end: 20050317
  4. SIROLIMUS [Suspect]
     Route: 048
     Dates: start: 20050318, end: 20050331
  5. SIROLIMUS [Suspect]
     Route: 048
     Dates: start: 20050401, end: 20050505
  6. SIROLIMUS [Suspect]
     Route: 048
     Dates: start: 20050506, end: 20050623
  7. SIROLIMUS [Suspect]
     Route: 048
     Dates: start: 20050624, end: 20050714
  8. SIROLIMUS [Suspect]
     Route: 048
     Dates: start: 20050715, end: 20050728
  9. SIROLIMUS [Suspect]
     Route: 048
     Dates: start: 20050729, end: 20050818
  10. SIROLIMUS [Suspect]
     Route: 048
     Dates: start: 20050819, end: 20050929
  11. SIROLIMUS [Suspect]
     Route: 048
     Dates: start: 20050930, end: 20051020
  12. SIROLIMUS [Suspect]
     Route: 048
     Dates: start: 20051021, end: 20051024
  13. SIROLIMUS [Suspect]
     Route: 048
     Dates: start: 20051025, end: 20051106
  14. SIROLIMUS [Suspect]
     Route: 048
     Dates: start: 20050131, end: 20050131
  15. MEDROL [Concomitant]
     Indication: PROPHYLAXIS AGAINST TRANSPLANT REJECTION
     Route: 048
     Dates: start: 20050201, end: 20050228
  16. MEDROL [Concomitant]
     Route: 048
     Dates: start: 20050301, end: 20051022
  17. MEDROL [Concomitant]
     Route: 048
     Dates: start: 20051023, end: 20051106
  18. TACROLIMUS [Concomitant]
     Indication: PROPHYLAXIS AGAINST TRANSPLANT REJECTION
     Route: 048
     Dates: start: 20050202, end: 20050202
  19. TACROLIMUS [Concomitant]
     Route: 048
     Dates: start: 20050203, end: 20050203
  20. TACROLIMUS [Concomitant]
     Route: 048
     Dates: start: 20050204, end: 20050204
  21. TACROLIMUS [Concomitant]
     Route: 048
     Dates: start: 20050205, end: 20050206
  22. TACROLIMUS [Concomitant]
     Route: 048
     Dates: start: 20050207, end: 20050207
  23. TACROLIMUS [Concomitant]
     Route: 048
     Dates: start: 20050208, end: 20050209
  24. TACROLIMUS [Concomitant]
     Route: 048
     Dates: start: 20050210, end: 20050210
  25. TACROLIMUS [Concomitant]
     Route: 048
     Dates: start: 20050211, end: 20050214
  26. TACROLIMUS [Concomitant]
     Route: 048
     Dates: start: 20050215, end: 20050217
  27. TACROLIMUS [Concomitant]
     Route: 048
     Dates: start: 20050218, end: 20050221
  28. TACROLIMUS [Concomitant]
     Route: 048
     Dates: start: 20050222, end: 20050307
  29. TACROLIMUS [Concomitant]
     Route: 048
     Dates: start: 20050308, end: 20050317
  30. TACROLIMUS [Concomitant]
     Route: 048
     Dates: start: 20050318, end: 20050331
  31. TACROLIMUS [Concomitant]
     Route: 048
     Dates: start: 20050301, end: 20050414
  32. TACROLIMUS [Concomitant]
     Route: 048
     Dates: start: 20050415, end: 20050421
  33. TACROLIMUS [Concomitant]
     Route: 048
     Dates: start: 20050422, end: 20050505
  34. TACROLIMUS [Concomitant]
     Route: 048
     Dates: start: 20050506, end: 20050519
  35. TACROLIMUS [Concomitant]
     Route: 048
     Dates: start: 20050520, end: 20050530
  36. TACROLIMUS [Concomitant]
     Route: 048
     Dates: start: 20050531, end: 20050608
  37. TACROLIMUS [Concomitant]
     Route: 048
     Dates: start: 20050609, end: 20050616
  38. TACROLIMUS [Concomitant]
     Route: 048
     Dates: start: 20050617, end: 20060624
  39. DACLIZUMAB [Concomitant]
     Indication: PROPHYLAXIS AGAINST TRANSPLANT REJECTION
     Dates: start: 20050130, end: 20050130
  40. DACLIZUMAB [Concomitant]
     Dates: start: 20050211, end: 20050211
  41. SOLU-MEDROL [Concomitant]
     Indication: PROPHYLAXIS AGAINST TRANSPLANT REJECTION
     Dates: start: 20050130, end: 20050130
  42. SOLU-MEDROL [Concomitant]
     Dates: start: 20050131, end: 20050131

REACTIONS (3)
  - URETERECTOMY [None]
  - URINARY INCONTINENCE [None]
  - URINARY TRACT INFECTION [None]
